FAERS Safety Report 13385030 (Version 1)
Quarter: 2017Q1

REPORT INFORMATION
  Report Type: Spontaneous
  Country: US (occurrence: US)
  Receive Date: 20170330
  Receipt Date: 20170330
  Transmission Date: 20170429
  Serious: Yes (Disabling)
  Sender: FDA-Public Use
  Company Number: None

PATIENT
  Age: 28 Year
  Sex: Female
  Weight: 85.5 kg

DRUGS (5)
  1. MAGNESIUM [Concomitant]
     Active Substance: MAGNESIUM
  2. TRAZODONE [Concomitant]
     Active Substance: TRAZODONE HYDROCHLORIDE
  3. NALTREXONE [Suspect]
     Active Substance: NALTREXONE
     Indication: FIBROMYALGIA
     Dosage: ?          QUANTITY:90 CAPSULE(S);?
     Route: 048
     Dates: start: 20161009, end: 20161023
  4. CYMBALTA [Concomitant]
     Active Substance: DULOXETINE HYDROCHLORIDE
  5. KRILL OIL [Concomitant]
     Active Substance: DIETARY SUPPLEMENT

REACTIONS (10)
  - Vertigo [None]
  - Activities of daily living impaired [None]
  - Off label use [None]
  - Dizziness [None]
  - Sudden onset of sleep [None]
  - Disturbance in attention [None]
  - Vision blurred [None]
  - Feeling abnormal [None]
  - Feeling drunk [None]
  - Balance disorder [None]

NARRATIVE: CASE EVENT DATE: 20161020
